FAERS Safety Report 19551375 (Version 1)
Quarter: 2021Q3

REPORT INFORMATION
  Report Type: Spontaneous
  Country: US (occurrence: US)
  Receive Date: 20210715
  Receipt Date: 20210715
  Transmission Date: 20211014
  Serious: No
  Sender: FDA-Public Use
  Company Number: US-ACCORD-212847

PATIENT
  Sex: Female

DRUGS (1)
  1. LETROZOLE ACCORD [Suspect]
     Active Substance: LETROZOLE
     Indication: BREAST CANCER
     Dosage: DAILY
     Route: 048
     Dates: start: 202009

REACTIONS (1)
  - Dysphagia [Not Recovered/Not Resolved]
